FAERS Safety Report 8342242-9 (Version None)
Quarter: 2012Q2

REPORT INFORMATION
  Report Type: 
  Country: None (occurrence: None)
  Receive Date: 20120507
  Receipt Date: 20120502
  Transmission Date: 20120825
  Serious: Yes (Hospitalization, Other)
  Sender: FDA-Public Use
  Company Number: US-AMGEN-USASP2012011079

PATIENT
  Age: 62 Year
  Sex: Female
  Weight: 50.794 kg

DRUGS (10)
  1. PROLIA [Suspect]
     Indication: OSTEOPOROSIS POSTMENOPAUSAL
     Dosage: 60 MG, Q6MO
     Route: 058
     Dates: start: 20111027
  2. NIASPAN [Concomitant]
     Dosage: 500 MG, QD
     Route: 048
  3. TOPAMAX [Concomitant]
     Dosage: 50 MG, BID
     Route: 048
  4. AMBIEN [Concomitant]
     Dosage: 10 MG, QD
  5. ZOMIG [Concomitant]
     Dosage: 2.5 MG, PRN
  6. FOSAMAX [Concomitant]
     Indication: PAIN IN JAW
  7. CRESTOR [Concomitant]
     Dosage: 10 MG, QD
     Route: 048
  8. NEXIUM [Concomitant]
     Dosage: 40 MG, QD
     Route: 048
  9. ASPIRIN [Concomitant]
     Dosage: 81 MG, QD
  10. NAPROXEN (ALEVE) [Concomitant]

REACTIONS (4)
  - CHEST PAIN [None]
  - OSTEONECROSIS OF JAW [None]
  - TOOTH ABSCESS [None]
  - MALAISE [None]
